FAERS Safety Report 8988808 (Version 1)
Quarter: 2012Q4

REPORT INFORMATION
  Report Type: Spontaneous
  Country: US (occurrence: None)
  Receive Date: 20121218
  Receipt Date: 20121218
  Transmission Date: 20130627
  Serious: Yes (Hospitalization, Other)
  Sender: FDA-Public Use
  Company Number: 2012P1066603

PATIENT
  Age: 46 Year
  Sex: Male

DRUGS (5)
  1. INFUMORPH [Suspect]
  2. BACLOFEN [Suspect]
     Dosage: 206.66 UG;QD
  3. BUPIVACAINE [Suspect]
  4. FENTANYL (NO PREF. NAME) [Suspect]
     Dosage: 1300.6 UG;QD
  5. CLONIDINE [Suspect]
     Dosage: 74.32 UG;QD

REACTIONS (4)
  - Hip fracture [None]
  - Diplegia [None]
  - Therapeutic response decreased [None]
  - Drug withdrawal syndrome [None]
